FAERS Safety Report 7642262-3 (Version None)
Quarter: 2011Q3

REPORT INFORMATION
  Report Type: 
  Country: None (occurrence: None)
  Receive Date: 20110727
  Receipt Date: 20110727
  Transmission Date: 20111222
  Serious: Yes (Other)
  Sender: FDA-Public Use
  Company Number: None

PATIENT
  Age: 86 Year
  Sex: Female
  Weight: 47.1741 kg

DRUGS (1)
  1. PRADAXA [Suspect]
     Indication: THROMBOSIS
     Dosage: 150MG TWICE A DAY P.O.
     Route: 048
     Dates: start: 20100328

REACTIONS (3)
  - HAEMATEMESIS [None]
  - MELAENA [None]
  - GASTRIC DISORDER [None]
